FAERS Safety Report 18451910 (Version 3)
Quarter: 2021Q1

REPORT INFORMATION
  Report Type: Report from Study
  Country: None (occurrence: US)
  Receive Date: 20201102
  Receipt Date: 20210221
  Transmission Date: 20210419
  Serious: Yes (Other)
  Sender: FDA-Public Use
  Company Number: US-ABBVIE-20K-163-3590119-00

PATIENT
  Sex: Female

DRUGS (3)
  1. HUMIRA [Suspect]
     Active Substance: ADALIMUMAB
     Indication: CROHN^S DISEASE
     Route: 058
  2. HUMIRA [Suspect]
     Active Substance: ADALIMUMAB
     Indication: RHEUMATOID ARTHRITIS
     Route: 058
     Dates: end: 2020
  3. PHENELZINE [Concomitant]
     Active Substance: PHENELZINE
     Indication: PRODUCT USED FOR UNKNOWN INDICATION
     Route: 065

REACTIONS (4)
  - Rheumatoid arthritis [Recovering/Resolving]
  - Therapeutic product effect incomplete [Not Recovered/Not Resolved]
  - Gallbladder disorder [Unknown]
  - Hernia [Unknown]
